FAERS Safety Report 9279587 (Version 2)
Quarter: 2013Q2

REPORT INFORMATION
  Report Type: Spontaneous
  Country: PT (occurrence: PT)
  Receive Date: 20130509
  Receipt Date: 20130608
  Transmission Date: 20140414
  Serious: No
  Sender: FDA-Public Use
  Company Number: PT-009507513-1305PRT002521

PATIENT
  Age: 62 Year
  Sex: Male
  Weight: 82 kg

DRUGS (7)
  1. VICTRELIS [Suspect]
     Indication: HEPATITIS C
     Dosage: 800 MG, TID
     Route: 048
     Dates: start: 20130402
  2. HYDROXYZINE [Concomitant]
     Indication: DRUG TOXICITY PROPHYLAXIS
     Dosage: 1 DF, QD
     Route: 048
     Dates: start: 20130306
  3. COPEGUS [Concomitant]
     Indication: HEPATITIS C
     Dosage: 1 DF, QD
     Route: 048
     Dates: start: 20130306
  4. PEGASYS [Concomitant]
     Indication: HEPATITIS C
     Dosage: 1 DF, CYCLICAL
     Route: 058
     Dates: start: 20130306
  5. SERENAL (OXAZEPAM) [Concomitant]
     Indication: DRUG TOXICITY PROPHYLAXIS
     Dosage: 1 DF, QD
     Route: 048
     Dates: start: 20130306
  6. VENLAFAXINE HYDROCHLORIDE [Concomitant]
     Indication: DRUG TOXICITY PROPHYLAXIS
     Dosage: 1 DF, QD
     Route: 048
     Dates: start: 20130306
  7. TEVAGRASTIM [Concomitant]
     Indication: DRUG TOXICITY PROPHYLAXIS
     Dosage: 1 DF, CYCLICAL
     Route: 058
     Dates: start: 20130320

REACTIONS (1)
  - Panic attack [Not Recovered/Not Resolved]
